FAERS Safety Report 8030103-4 (Version None)
Quarter: 2012Q1

REPORT INFORMATION
  Report Type: 
  Country: None (occurrence: None)
  Receive Date: 20120109
  Receipt Date: 20111114
  Transmission Date: 20120608
  Serious: Yes (Hospitalization)
  Sender: FDA-Public Use
  Company Number: US-BAYER-200929039NA

PATIENT
  Age: 40 Year
  Sex: Female
  Weight: 75 kg

DRUGS (14)
  1. YAZ [Suspect]
     Indication: CONTRACEPTION
     Route: 048
     Dates: start: 20070301, end: 20071015
  2. TRI-NORINYL 21-DAY [Concomitant]
     Indication: CONTRACEPTION
     Dosage: 1 DF, UNK
  3. PROPOXYPHENE HYDROCHLORIDE [Concomitant]
     Route: 065
     Dates: start: 20060207, end: 20070403
  4. NIFEDIPINE [Concomitant]
     Dosage: 03-APR-2007
     Route: 065
  5. MOTRIN [Concomitant]
  6. PENICILLIN VK [Concomitant]
     Route: 065
     Dates: start: 20060711, end: 20061005
  7. AMOXICILLIN [Concomitant]
     Dosage: 12-FEB-2007
     Route: 065
  8. CALNATE [Concomitant]
  9. IBUPROFEN [Concomitant]
     Dosage: 03-APR-2007
     Route: 065
  10. ZITHROMAX [Concomitant]
  11. FOLIC ACID [Concomitant]
  12. ANALGESICS [Concomitant]
  13. HYDROCODONE BITARTRATE AND ACETAMINOPHEN [Concomitant]
     Dosage: 5/500. 04-APR-2007
     Route: 065
  14. ACETAMINOPHEN [Concomitant]

REACTIONS (5)
  - PAIN [None]
  - DEEP VEIN THROMBOSIS [None]
  - ARTHRALGIA [None]
  - MUSCLE STRAIN [None]
  - MENTAL DISORDER [None]
